FAERS Safety Report 11090755 (Version 4)
Quarter: 2016Q1

REPORT INFORMATION
  Report Type: Spontaneous
  Country: US (occurrence: US)
  Receive Date: 20150505
  Receipt Date: 20160219
  Transmission Date: 20160525
  Serious: Yes (Hospitalization, Other)
  Sender: FDA-Public Use
  Company Number: US-PFIZER INC-2015150006

PATIENT
  Age: 65 Year
  Sex: Female
  Weight: 88 kg

DRUGS (31)
  1. PROVERA [Suspect]
     Active Substance: MEDROXYPROGESTERONE ACETATE
     Dosage: UNK
  2. LEVEMIR [Concomitant]
     Active Substance: INSULIN DETEMIR
     Dosage: 25 IU, 1X/DAY (AM)
  3. METOPROLOL SUCCINATE. [Concomitant]
     Active Substance: METOPROLOL SUCCINATE
     Dosage: 50 MG, DAILY
     Dates: start: 20120511
  4. SINGULAIR [Concomitant]
     Active Substance: MONTELUKAST SODIUM
     Dosage: 10 MG, DAILY AS DIRECTED
     Route: 048
     Dates: start: 20051102
  5. PANTOPRAZOLE SODIUM. [Concomitant]
     Active Substance: PANTOPRAZOLE SODIUM
     Dosage: 40 MG, 1X/DAY AT BREAKFAST
     Route: 048
     Dates: start: 20131009
  6. SYMLINPEN [Concomitant]
     Active Substance: PRAMLINTIDE ACETATE
     Dosage: UNK
     Route: 058
  7. ASPIRIN /00002701/ [Concomitant]
     Active Substance: ASPIRIN
     Dosage: 81 MG, DAILY
     Route: 048
  8. SYNTHROID [Concomitant]
     Active Substance: LEVOTHYROXINE SODIUM
     Dosage: 137 UG, DAILY
     Route: 048
     Dates: start: 20111002
  9. AMOXICILLIN. [Concomitant]
     Active Substance: AMOXICILLIN
     Dosage: 1000 MG (2 CAPSULE)
     Route: 048
  10. IRON [Concomitant]
     Active Substance: IRON
     Dosage: 2 DF, DAILY
  11. MIRTAZAPINE. [Concomitant]
     Active Substance: MIRTAZAPINE
     Dosage: 22.5 MG, 1X/DAY AT BEDTIME
     Route: 048
     Dates: start: 20130917
  12. VITAMIN D /00107901/ [Concomitant]
     Active Substance: ERGOCALCIFEROL
     Dosage: UNK
  13. LYRICA [Suspect]
     Active Substance: PREGABALIN
     Dosage: 100 MG, 2X/DAY
     Route: 048
     Dates: start: 20090304
  14. ATORVASTATIN CALCIUM. [Concomitant]
     Active Substance: ATORVASTATIN CALCIUM
     Dosage: 10 MG
     Route: 048
     Dates: start: 20150928
  15. BUMETANIDE. [Concomitant]
     Active Substance: BUMETANIDE
     Dosage: 6 MG, 1X/DAY EVERY MORNING
     Route: 048
     Dates: start: 20130607
  16. OXYBUTYNIN CHLORIDE. [Concomitant]
     Active Substance: OXYBUTYNIN CHLORIDE
     Dosage: 10 MG, DAILY
     Route: 048
     Dates: start: 20150707
  17. PROAIR HFA [Concomitant]
     Active Substance: ALBUTEROL SULFATE
     Dosage: 2 DF, AS NEEDED  (2 PUFFS EVERY 4 HOURS AS NEEDED)
     Route: 055
     Dates: start: 20130830
  18. ZOFRAN [Concomitant]
     Active Substance: ONDANSETRON HYDROCHLORIDE
     Dosage: 4 MG, AS NEEDED
     Route: 048
  19. VFEND [Suspect]
     Active Substance: VORICONAZOLE
     Indication: FUNGAL INFECTION
     Dosage: 200 MG, 2X/DAY
     Route: 048
     Dates: start: 20120706
  20. STIMATE /00361902/ [Concomitant]
     Dosage: 1.5 MG/ML, AS NEEDED
  21. EFFEXOR XR [Suspect]
     Active Substance: VENLAFAXINE HYDROCHLORIDE
     Dosage: 225 MG, DAILY
     Route: 048
     Dates: start: 20061003
  22. AMITRIPTYLINE HCL [Concomitant]
     Active Substance: AMITRIPTYLINE
     Dosage: 150 MG, 1X/DAY AT BEDTIME AS NEEDED
     Route: 048
     Dates: start: 20090109
  23. LEVAQUIN [Concomitant]
     Active Substance: LEVOFLOXACIN
     Dosage: 500 MG, DAILY, AS DIRECTED
     Route: 048
     Dates: start: 20151230
  24. REMEDY SKIN REPAIR [Concomitant]
     Active Substance: DIMETHICONE
     Indication: WOUND
     Dosage: 1-2 X DAILY
     Dates: start: 20140821
  25. ULTRAM [Concomitant]
     Active Substance: TRAMADOL HYDROCHLORIDE
     Dosage: 1 TO 2 TABLETS EVERY 6 HOURS AS NEEDED
     Route: 048
     Dates: start: 20050907
  26. PREMARIN [Suspect]
     Active Substance: ESTROGENS, CONJUGATED
     Dosage: 0.625 MG/G
     Route: 067
     Dates: start: 20150203
  27. ALPRAZOLAM. [Concomitant]
     Active Substance: ALPRAZOLAM
     Dosage: 0.5 MG, 3X/DAY AS NEEDED
     Route: 048
     Dates: start: 20090109
  28. LEVEMIR [Concomitant]
     Active Substance: INSULIN DETEMIR
     Dosage: 55 IU, 1X/DAY (PM)
  29. NOVOLOG [Concomitant]
     Active Substance: INSULIN ASPART
     Dosage: 100 IU/ML
     Route: 058
     Dates: start: 20140806
  30. VITAMIN C [Concomitant]
     Active Substance: ASCORBIC ACID
     Dosage: UNK
  31. ZOLPIDEM TARTRATE. [Concomitant]
     Active Substance: ZOLPIDEM TARTRATE
     Dosage: 12.5 MG
     Route: 048
     Dates: start: 20150831

REACTIONS (9)
  - Cerebrovascular accident [Unknown]
  - Memory impairment [Unknown]
  - Pneumonia aspiration [Unknown]
  - Device related infection [Unknown]
  - Fungal infection [Unknown]
  - Hiatus hernia [Unknown]
  - Fungaemia [Unknown]
  - Oesophageal disorder [Unknown]
  - Mitral valve disease [Unknown]

NARRATIVE: CASE EVENT DATE: 201502
